FAERS Safety Report 17164213 (Version 2)
Quarter: 2019Q4

REPORT INFORMATION
  Report Type: Spontaneous
  Country: US (occurrence: US)
  Receive Date: 20191217
  Receipt Date: 20191218
  Transmission Date: 20200122
  Serious: No
  Sender: FDA-Public Use
  Company Number: US-PFIZER INC-2019040582

PATIENT
  Age: 66 Year
  Sex: Female

DRUGS (1)
  1. LYRICA [Suspect]
     Active Substance: PREGABALIN
     Indication: CARDIOMYOPATHY
     Dosage: 150 MG, 3X/DAY [1 CAPSULE THREE TIMES A DAY 30 DAYS]
     Route: 048

REACTIONS (4)
  - Product use in unapproved indication [Unknown]
  - Sensitivity to weather change [Unknown]
  - Off label use [Unknown]
  - Arthritis [Unknown]
